FAERS Safety Report 18289110 (Version 1)
Quarter: 2020Q3

REPORT INFORMATION
  Report Type: Spontaneous
  Country: US (occurrence: US)
  Receive Date: 20200921
  Receipt Date: 20200921
  Transmission Date: 20201103
  Serious: Yes (Hospitalization)
  Sender: FDA-Public Use
  Company Number: None

PATIENT
  Age: 47 Year
  Sex: Male

DRUGS (4)
  1. NOVOLOG [Concomitant]
     Active Substance: INSULIN ASPART
     Dates: start: 20190215
  2. VENTOLIN HFA [Concomitant]
     Active Substance: ALBUTEROL SULFATE
     Dates: start: 20191219
  3. ENVARSUS XR [Concomitant]
     Active Substance: TACROLIMUS
     Dates: start: 20200319
  4. MYCOPHENOLIC [Suspect]
     Active Substance: MYCOPHENOLIC ACID
     Indication: RENAL TRANSPLANT
     Route: 048
     Dates: start: 20200220

REACTIONS (4)
  - Memory impairment [None]
  - Blood blister [None]
  - Somnolence [None]
  - Vision blurred [None]

NARRATIVE: CASE EVENT DATE: 20200913
